FAERS Safety Report 9917071 (Version 3)
Quarter: 2014Q4

REPORT INFORMATION
  Report Type: Report from Study
  Country: ES (occurrence: ES)
  Receive Date: 20140221
  Receipt Date: 20141212
  Transmission Date: 20150529
  Serious: Yes (Disabling, Other)
  Sender: FDA-Public Use
  Company Number: ES-009507513-1402ESP009051

PATIENT
  Age: 71 Year
  Sex: Male
  Weight: 81 kg

DRUGS (7)
  1. LACTULOSE. [Concomitant]
     Active Substance: LACTULOSE
  2. BOCEPREVIR [Suspect]
     Active Substance: BOCEPREVIR
     Indication: CHRONIC HEPATITIS C
     Dosage: FORMULATION: 200 MG, 2400 MG QD
     Route: 048
     Dates: start: 20130403, end: 20131010
  3. COPEGUS [Suspect]
     Active Substance: RIBAVIRIN
     Indication: CHRONIC HEPATITIS C
     Dosage: 1200 MG QD
     Route: 048
     Dates: start: 20130309, end: 20130711
  4. COPEGUS [Suspect]
     Active Substance: RIBAVIRIN
     Dosage: 1000 MG QD
     Route: 048
     Dates: start: 20130712, end: 20131010
  5. ESCITALOPRAM [Concomitant]
     Active Substance: ESCITALOPRAM OXALATE
     Indication: PROPHYLAXIS
     Dosage: 10 MG, QD, FORMULATION: 10 MG
     Route: 048
     Dates: start: 20130403
  6. PEGINTERFERON ALFA-2B [Suspect]
     Active Substance: PEGINTERFERON ALFA-2B
     Indication: CHRONIC HEPATITIS C
     Dosage: 1.48 MICROGRAM PER KILOGRAM, QW
     Route: 058
     Dates: start: 20130309, end: 20131010
  7. METFORMIN [Concomitant]
     Active Substance: METFORMIN HYDROCHLORIDE
     Indication: DIABETES MELLITUS
     Dosage: FORMULATION: 750 MG, 2250 MG DAILY
     Route: 048
     Dates: start: 20130403

REACTIONS (4)
  - Thrombocytopenia [Recovered/Resolved]
  - Hepatic encephalopathy [Recovered/Resolved]
  - Anaemia [Recovered/Resolved]
  - Neutropenia [Recovered/Resolved]

NARRATIVE: CASE EVENT DATE: 20130711
